FAERS Safety Report 8382359-6 (Version None)
Quarter: 2012Q2

REPORT INFORMATION
  Report Type: 
  Country: None (occurrence: None)
  Receive Date: 20120524
  Receipt Date: 20120514
  Transmission Date: 20120825
  Serious: Yes (Hospitalization)
  Sender: FDA-Public Use
  Company Number: GB-ELI_LILLY_AND_COMPANY-GB201205005887

PATIENT
  Age: 68 Year
  Sex: Male

DRUGS (2)
  1. HUMATROPE [Suspect]
     Dosage: 0.35 UNK, UNKNOWN
     Dates: start: 20120309
  2. HUMATROPE [Suspect]
     Dosage: UNK UNK, UNKNOWN

REACTIONS (2)
  - BLOOD TEST ABNORMAL [None]
  - DYSPNOEA [None]
